FAERS Safety Report 25911152 (Version 1)
Quarter: 2025Q4

REPORT INFORMATION
  Report Type: Spontaneous
  Country: CN (occurrence: None)
  Receive Date: 20251013
  Receipt Date: 20251013
  Transmission Date: 20260117
  Serious: Yes (Hospitalization)
  Sender: ENCUBE ETHICALS PVT. LTD.
  Company Number: CN-Encube-002302

PATIENT
  Age: 60 Year
  Sex: Male

DRUGS (2)
  1. TRIAMCINOLONE ACETONIDE [Suspect]
     Active Substance: TRIAMCINOLONE ACETONIDE
     Indication: Endocrine ophthalmopathy
     Dosage: RECEIVED 5 PERIBULBAR INJECTIONS
  2. METHIMAZOLE [Concomitant]
     Active Substance: METHIMAZOLE
     Indication: Hyperthyroidism
     Route: 048

REACTIONS (3)
  - Off label use [Unknown]
  - Central serous chorioretinopathy [Recovered/Resolved]
  - Detachment of retinal pigment epithelium [Recovered/Resolved]
